FAERS Safety Report 6359442-X (Version None)
Quarter: 2009Q3

REPORT INFORMATION
  Report Type: 
  Country: None (occurrence: None)
  Receive Date: 20090917
  Receipt Date: 20090903
  Transmission Date: 20100115
  Serious: Yes (Hospitalization)
  Sender: FDA-Public Use
  Company Number: US-PFIZER INC-2009263548

PATIENT
  Sex: Female
  Weight: 67.2 kg

DRUGS (1)
  1. SUNITINIB MALATE [Suspect]
     Indication: SARCOMATOSIS
     Dosage: 50 MG, 1X/DAY FOR 28 DAYS
     Route: 048
     Dates: start: 20071003

REACTIONS (1)
  - MYOCARDIAL INFARCTION [None]
